FAERS Safety Report 7486845-2 (Version None)
Quarter: 2011Q2

REPORT INFORMATION
  Report Type: 
  Country: None (occurrence: None)
  Receive Date: 20110517
  Receipt Date: 20110510
  Transmission Date: 20111010
  Serious: Yes (Hospitalization)
  Sender: FDA-Public Use
  Company Number: US-US-EMD SERONO, INC.-7058933

PATIENT
  Sex: Female

DRUGS (2)
  1. NAPROXEN (ALEVE) [Concomitant]
     Indication: PREMEDICATION
  2. REBIF [Suspect]
     Indication: PRODUCT USED FOR UNKNOWN INDICATION
     Route: 058
     Dates: start: 20100629

REACTIONS (7)
  - CHILLS [None]
  - PAIN [None]
  - ASTHENIA [None]
  - HEADACHE [None]
  - INJECTION SITE ERYTHEMA [None]
  - INTERVERTEBRAL DISC COMPRESSION [None]
  - INJECTION SITE HAEMATOMA [None]
